FAERS Safety Report 24970306 (Version 1)
Quarter: 2025Q1

REPORT INFORMATION
  Report Type: Spontaneous
  Country: US (occurrence: None)
  Receive Date: 20250213
  Receipt Date: 20250213
  Transmission Date: 20250409
  Serious: Yes (Other)
  Sender: FDA-CTU
  Company Number: None

PATIENT
  Age: 62 Year
  Sex: Male
  Weight: 136.12 kg

DRUGS (2)
  1. ULTOMIRIS [Suspect]
     Active Substance: RAVULIZUMAB-CWVZ
     Indication: Myasthenia gravis
     Dosage: OTHER FREQUENCY : Q8 WEEKS;?
     Route: 041
     Dates: start: 20241205
  2. ULTOMIRIS [Suspect]
     Active Substance: RAVULIZUMAB-CWVZ
     Indication: Myasthenia gravis
     Dosage: OTHER FREQUENCY : Q8 WEEKS;?
     Route: 041
     Dates: start: 20241205

REACTIONS (1)
  - Hypotension [None]

NARRATIVE: CASE EVENT DATE: 20250213
